FAERS Safety Report 16591752 (Version 2)
Quarter: 2019Q3

REPORT INFORMATION
  Report Type: Report from Study
  Country: TW (occurrence: TW)
  Receive Date: 20190718
  Receipt Date: 20190731
  Transmission Date: 20191004
  Serious: Yes (Other)
  Sender: FDA-Public Use
  Company Number: PHHY2019TW166596

PATIENT
  Age: 72 Year
  Sex: Male

DRUGS (14)
  1. TASIGNA [Suspect]
     Active Substance: NILOTINIB
     Indication: CHRONIC MYELOID LEUKAEMIA
     Dosage: 600 OT, UNK
     Route: 048
     Dates: start: 20160419
  2. SILODOSIN. [Concomitant]
     Active Substance: SILODOSIN
     Indication: BLADDER DYSFUNCTION
     Dosage: 4 MG, UNK
     Route: 048
     Dates: start: 20160427, end: 20160510
  3. TROSPIUM CHLORIDE. [Concomitant]
     Active Substance: TROSPIUM CHLORIDE
     Indication: PROSTATIC SPECIFIC ANTIGEN INCREASED
     Dosage: 10 MG, UNK
     Route: 048
     Dates: end: 20160414
  4. AMLODIPINE [Concomitant]
     Active Substance: AMLODIPINE BESYLATE
     Indication: HYPERTENSION
     Dosage: 5 MG, UNK
     Route: 048
     Dates: end: 20160419
  5. AMLODIPINE [Concomitant]
     Active Substance: AMLODIPINE BESYLATE
     Indication: HYPERTENSIVE HEART DISEASE
     Dosage: 5 MG, UNK
     Route: 048
     Dates: start: 20170124
  6. TAMSULOSIN [Concomitant]
     Active Substance: TAMSULOSIN
     Indication: PROSTATIC SPECIFIC ANTIGEN INCREASED
     Dosage: 0.2 MG, UNK
     Route: 048
     Dates: end: 20160418
  7. CARVEDILOL. [Concomitant]
     Active Substance: CARVEDILOL
     Indication: HYPERTENSIVE HEART DISEASE
     Dosage: 25 MG, UNK
     Route: 048
     Dates: end: 20160419
  8. IMIPRAMINE [Concomitant]
     Active Substance: IMIPRAMINE
     Indication: BLADDER DYSFUNCTION
     Dosage: 25 MG, UNK
     Route: 048
     Dates: start: 20160427, end: 20160510
  9. RED BLOOD CELLS [Concomitant]
     Active Substance: HUMAN RED BLOOD CELL
     Dosage: 2 U, UNK
     Route: 042
     Dates: start: 20160531, end: 20160531
  10. FENOFIBRATE. [Concomitant]
     Active Substance: FENOFIBRATE
     Indication: HYPERLIPIDAEMIA
     Dosage: 160 MG, UNK
     Route: 048
     Dates: end: 20160419
  11. LOSARTAN. [Concomitant]
     Active Substance: LOSARTAN
     Indication: HYPERTENSIVE HEART DISEASE
     Dosage: 50 MG, UNK
     Route: 048
     Dates: end: 20160419
  12. PIPERILATE [Concomitant]
     Indication: PROSTATIC SPECIFIC ANTIGEN INCREASED
     Dosage: 10 MG, UNK
     Route: 048
     Dates: end: 20160414
  13. RED BLOOD CELLS [Concomitant]
     Active Substance: HUMAN RED BLOOD CELL
     Indication: ANAEMIA
     Dosage: 2 U, UNK
     Route: 042
     Dates: start: 20160424, end: 20160426
  14. DESMOPRESSIN [Concomitant]
     Active Substance: DESMOPRESSIN
     Indication: BLADDER DYSFUNCTION
     Dosage: 0.1 MG, UNK
     Route: 048
     Dates: start: 20160427, end: 20160510

REACTIONS (2)
  - Transient ischaemic attack [Recovered/Resolved]
  - Dizziness [Unknown]

NARRATIVE: CASE EVENT DATE: 20180821
